FAERS Safety Report 25154456 (Version 1)
Quarter: 2025Q2

REPORT INFORMATION
  Report Type: Spontaneous
  Country: CA (occurrence: US)
  Receive Date: 20250403
  Receipt Date: 20250403
  Transmission Date: 20250717
  Serious: No
  Sender: ELI LILLY AND CO
  Company Number: CA-ELI_LILLY_AND_COMPANY-US202504002740

PATIENT
  Age: 71 Year

DRUGS (1)
  1. BASAGLAR [Suspect]
     Active Substance: INSULIN GLARGINE
     Indication: Diabetes mellitus
     Dosage: 18 U, DAILY
     Route: 065

REACTIONS (5)
  - Foot fracture [Unknown]
  - Gait disturbance [Unknown]
  - Migraine [Unknown]
  - Visual impairment [Unknown]
  - Incorrect dose administered [Unknown]
